FAERS Safety Report 23379094 (Version 2)
Quarter: 2024Q1

REPORT INFORMATION
  Report Type: Report from Study
  Country: NL (occurrence: NL)
  Receive Date: 20240108
  Receipt Date: 20240122
  Transmission Date: 20240410
  Serious: Yes (Other)
  Sender: FDA-Public Use
  Company Number: None

PATIENT
  Age: 58 Year
  Sex: Male
  Weight: 99 kg

DRUGS (6)
  1. RITUXIMAB [Suspect]
     Active Substance: RITUXIMAB
     Indication: Follicular lymphoma stage IV
     Dosage: UNK
     Dates: start: 20210506
  2. NAPROXEN [Concomitant]
     Active Substance: NAPROXEN
  3. HYDROCHLOROTHIAZIDE [Concomitant]
     Active Substance: HYDROCHLOROTHIAZIDE
  4. CALCIUM CARBONATE\CHOLECALCIFEROL [Concomitant]
     Active Substance: CALCIUM CARBONATE\CHOLECALCIFEROL
     Dosage: KAUWTABLET, 1,25 G (GRAM)/800 EENHEDEN
  5. GLUCOSAMINE + CHONDORITIN [Concomitant]
  6. VITAMINS [Concomitant]
     Active Substance: VITAMINS
     Dosage: CAPSULE

REACTIONS (1)
  - Colitis [Not Recovered/Not Resolved]
